FAERS Safety Report 18490639 (Version 1)
Quarter: 2020Q4

REPORT INFORMATION
  Report Type: Spontaneous
  Country: US (occurrence: US)
  Receive Date: 20201111
  Receipt Date: 20201111
  Transmission Date: 20210114
  Serious: No
  Sender: FDA-Public Use
  Company Number: None

PATIENT
  Sex: Male

DRUGS (2)
  1. RENVELA [Suspect]
     Active Substance: SEVELAMER CARBONATE
  2. VELPHORO [Suspect]
     Active Substance: SUCROFERRIC OXYHYDROXIDE

REACTIONS (2)
  - Diarrhoea [None]
  - Abdominal discomfort [None]
